FAERS Safety Report 9904396 (Version 1)
Quarter: 2014Q1

REPORT INFORMATION
  Report Type: Spontaneous
  Country: US (occurrence: US)
  Receive Date: 20140218
  Receipt Date: 20140218
  Transmission Date: 20141002
  Serious: No
  Sender: FDA-Public Use
  Company Number: US-PFIZER INC-2014042191

PATIENT
  Sex: Female

DRUGS (1)
  1. XANAX [Suspect]
     Dosage: UNK

REACTIONS (6)
  - Poor quality drug administered [Unknown]
  - Neck pain [Unknown]
  - Chest pain [Unknown]
  - Dyspepsia [Unknown]
  - Dysgeusia [Unknown]
  - Product taste abnormal [Unknown]
